FAERS Safety Report 15190002 (Version 6)
Quarter: 2018Q4

REPORT INFORMATION
  Report Type: Spontaneous
  Country: DE (occurrence: DE)
  Receive Date: 20180724
  Receipt Date: 20181113
  Transmission Date: 20190204
  Serious: Yes (Death, Hospitalization, Other)
  Sender: FDA-Public Use
  Company Number: PHHY2018DE053451

PATIENT
  Age: 78 Year
  Sex: Female
  Weight: 69 kg

DRUGS (11)
  1. XARELTO [Interacting]
     Active Substance: RIVAROXABAN
     Indication: ATRIAL FIBRILLATION
     Dosage: 7.5 MG, QD
     Route: 048
     Dates: start: 20170102, end: 20170307
  2. TORASEMID [Concomitant]
     Active Substance: TORSEMIDE
     Indication: CARDIAC FAILURE
     Dosage: 10 MG, QD
     Route: 048
     Dates: start: 201712, end: 201712
  3. TORASEMID [Concomitant]
     Active Substance: TORSEMIDE
     Dosage: 1 DF, QD
     Route: 048
  4. L-THYROXIN [Concomitant]
     Active Substance: LEVOTHYROXINE SODIUM
     Indication: HYPOTHYROIDISM
     Dosage: 1 DF, QD
     Route: 048
     Dates: start: 201212
  5. SANDIMMUN [Suspect]
     Active Substance: CYCLOSPORINE
     Indication: MYELODYSPLASTIC SYNDROME
     Dosage: 1 DF, QD
     Route: 048
     Dates: start: 201009, end: 201112
  6. LERCANIDIPINE [Concomitant]
     Active Substance: LERCANIDIPINE
     Indication: HYPERTENSION
     Dosage: 10 MG, QD
     Route: 048
     Dates: start: 201609
  7. METOHEXAL [Concomitant]
     Active Substance: METOPROLOL
     Indication: ARRHYTHMIA
  8. METOHEXAL [Concomitant]
     Active Substance: METOPROLOL
     Indication: HYPERTENSION
     Dosage: 47.5 MG, Q12H
     Route: 048
     Dates: start: 201404
  9. APIXABAN [Concomitant]
     Active Substance: APIXABAN
     Indication: ATRIAL FIBRILLATION
     Route: 065
  10. ENAPLUS [Concomitant]
     Indication: HYPERTENSION
     Dosage: 1 DF, QD
     Route: 048
     Dates: start: 200904
  11. SANDIMMUN [Interacting]
     Active Substance: CYCLOSPORINE
     Dosage: 1 DF, QD
     Route: 048
     Dates: start: 201203, end: 20170123

REACTIONS (12)
  - Bronchitis [Fatal]
  - Leukopenia [Fatal]
  - Drug interaction [Fatal]
  - General physical health deterioration [Fatal]
  - Blood urea increased [Fatal]
  - Renal injury [Recovered/Resolved]
  - Dyspnoea [Fatal]
  - Blood creatinine increased [Fatal]
  - Pyrexia [Fatal]
  - Haemorrhage [Unknown]
  - Thrombocytopenia [Fatal]
  - Blood uric acid increased [Fatal]

NARRATIVE: CASE EVENT DATE: 20170112
